FAERS Safety Report 4694070-3 (Version None)
Quarter: 2005Q2

REPORT INFORMATION
  Report Type: 
  Country: None (occurrence: None)
  Receive Date: 20050616
  Receipt Date: 20050603
  Transmission Date: 20051028
  Serious: Yes (Hospitalization, Other)
  Sender: FDA-Public Use
  Company Number: 2005085901

PATIENT
  Sex: Female
  Weight: 52.1637 kg

DRUGS (5)
  1. BEXTRA [Suspect]
     Indication: ARTHRITIS
     Dosage: 10 MG (10 MG, 1 IN 1 D), ORAL
     Route: 048
  2. ALL OTHER THERAPEUTIC PRODUCTS [Concomitant]
  3. LIPITOR [Concomitant]
  4. CHOLESTEROL [Concomitant]
  5. COZAAR [Concomitant]

REACTIONS (4)
  - BREAST CANCER [None]
  - CORONARY ARTERY OCCLUSION [None]
  - DYSPEPSIA [None]
  - MYOCARDIAL INFARCTION [None]
